FAERS Safety Report 7468536-7 (Version None)
Quarter: 2011Q2

REPORT INFORMATION
  Report Type: 
  Country: None (occurrence: None)
  Receive Date: 20110509
  Receipt Date: 20110426
  Transmission Date: 20111010
  Serious: Yes (Hospitalization)
  Sender: FDA-Public Use
  Company Number: US-MYLANLABS-2011S1008682

PATIENT
  Age: 69 Year
  Sex: Male

DRUGS (1)
  1. IPRATROPIUM BROMIDE [Suspect]
     Indication: RESPIRATORY DISTRESS
     Dosage: NEBULISED IPRATROPIUM EVERY 4 HOURS

REACTIONS (2)
  - MYDRIASIS [None]
  - PUPILS UNEQUAL [None]
